FAERS Safety Report 6301718-6 (Version None)
Quarter: 2009Q3

REPORT INFORMATION
  Report Type: 
  Country: None (occurrence: None)
  Receive Date: 20090807
  Receipt Date: 20090728
  Transmission Date: 20100115
  Serious: Yes (Hospitalization)
  Sender: FDA-Public Use
  Company Number: SE-ELI_LILLY_AND_COMPANY-SE200907007029

PATIENT
  Age: 61 Year
  Sex: Female

DRUGS (1)
  1. CYMBALTA [Suspect]
     Dosage: 1.7 - 4.2 G, UNKNOWN
     Route: 065

REACTIONS (5)
  - DYSKINESIA [None]
  - HALLUCINATION, VISUAL [None]
  - HYPERTROPHIC CARDIOMYOPATHY [None]
  - INTENTIONAL OVERDOSE [None]
  - SEROTONIN SYNDROME [None]
